FAERS Safety Report 23475099 (Version 1)
Quarter: 2024Q1

REPORT INFORMATION
  Report Type: Spontaneous
  Country: US (occurrence: US)
  Receive Date: 20240204
  Receipt Date: 20240204
  Transmission Date: 20240410
  Serious: Yes (Other)
  Sender: FDA-Public Use
  Company Number: US-BRISTOL-MYERS SQUIBB COMPANY-2024-014644

PATIENT
  Age: 64 Year
  Sex: Male

DRUGS (1)
  1. POMALYST [Suspect]
     Active Substance: POMALIDOMIDE
     Indication: Plasma cell myeloma
     Dosage: TAKE 1 CAPSULE BY MOUTH ONCE DAILY ON DAYS 1-21 THEN 7 DAYS OFF
     Route: 048

REACTIONS (7)
  - Plasma cell myeloma recurrent [Recovering/Resolving]
  - Fatigue [Unknown]
  - Insomnia [Unknown]
  - Restless legs syndrome [Unknown]
  - Constipation [Unknown]
  - Diarrhoea [Unknown]
  - Renal disorder [Unknown]
